FAERS Safety Report 9637571 (Version 1)
Quarter: 2013Q4

REPORT INFORMATION
  Report Type: Spontaneous
  Country: US (occurrence: None)
  Receive Date: 20131022
  Receipt Date: 20131022
  Transmission Date: 20140711
  Serious: No
  Sender: FDA-Public Use
  Company Number: None

PATIENT
  Age: 48 Year
  Sex: Male
  Weight: 81.65 kg

DRUGS (1)
  1. DICLOF/BACL/CYCLOB/GABAP/BUPIV [Suspect]
     Indication: MUSCULOSKELETAL PAIN
     Dosage: 1-2 GRAMS FOUR TIMES DAILY APPLIED TO A SURFACE, USUALLY THE SKIN
     Route: 061
     Dates: start: 20131004, end: 20131018

REACTIONS (1)
  - Urticaria [None]
